FAERS Safety Report 7819474-9 (Version None)
Quarter: 2011Q4

REPORT INFORMATION
  Report Type: 
  Country: None (occurrence: None)
  Receive Date: 20111018
  Receipt Date: 20110812
  Transmission Date: 20120403
  Serious: No
  Sender: FDA-Public Use
  Company Number: US-ASTRAZENECA-2011SE49082

PATIENT
  Age: 37 Year
  Sex: Female

DRUGS (3)
  1. SYMBICORT [Suspect]
     Dosage: TOTAL DAILY DOSAGE AND FREQUENCY: UNKNOWN.
     Route: 055
  2. STEROID [Suspect]
     Route: 065
  3. XOPENEX [Concomitant]
     Route: 065

REACTIONS (7)
  - WEIGHT INCREASED [None]
  - DRUG DOSE OMISSION [None]
  - FEELING JITTERY [None]
  - ASTHMA [None]
  - DYSPNOEA [None]
  - COUGH [None]
  - WHEEZING [None]
